FAERS Safety Report 24099519 (Version 1)
Quarter: 2024Q3

REPORT INFORMATION
  Report Type: Spontaneous
  Country: US (occurrence: US)
  Receive Date: 20240716
  Receipt Date: 20240716
  Transmission Date: 20241016
  Serious: No
  Sender: NOVO NORDISK
  Company Number: US-NOVOPROD-1207262

PATIENT
  Sex: Male

DRUGS (2)
  1. NovoFine Plus (32G) [Concomitant]
     Indication: Device therapy
     Dosage: UNK
     Route: 058
  2. OZEMPIC [Suspect]
     Active Substance: SEMAGLUTIDE
     Indication: Diabetes mellitus
     Dosage: 1 MG
     Route: 058

REACTIONS (4)
  - Back pain [Recovered/Resolved]
  - Myalgia [Recovered/Resolved]
  - Food craving [Recovered/Resolved]
  - Decreased appetite [Recovered/Resolved]

NARRATIVE: CASE EVENT DATE: 20231201
